FAERS Safety Report 20184852 (Version 4)
Quarter: 2022Q1

REPORT INFORMATION
  Report Type: Spontaneous
  Country: US (occurrence: US)
  Receive Date: 20211214
  Receipt Date: 20220131
  Transmission Date: 20220423
  Serious: Yes (Other)
  Sender: FDA-Public Use
  Company Number: US-ALXN-A202113533

PATIENT
  Sex: Female

DRUGS (5)
  1. ULTOMIRIS [Suspect]
     Active Substance: RAVULIZUMAB-CWVZ
     Dosage: 3000 MG (MAINTENANCE LOADING DOSE)
     Route: 065
     Dates: start: 20211105
  2. ULTOMIRIS [Suspect]
     Active Substance: RAVULIZUMAB-CWVZ
     Indication: Paroxysmal nocturnal haemoglobinuria
     Dosage: 3600 MG (LOADING DOSE)
     Route: 065
     Dates: start: 20211018
  3. Covid-19 Vaccine [Concomitant]
     Dosage: COVID BOOSTER
     Route: 065
     Dates: start: 202112
  4. Covid-19 Vaccine [Concomitant]
     Indication: COVID-19 immunisation
     Dosage: UNK
     Route: 065
  5. Covid-19 Vaccine [Concomitant]
     Dosage: UNK
     Route: 065

REACTIONS (3)
  - Haemoglobin decreased [Unknown]
  - Malaise [Unknown]
  - Blood lactate dehydrogenase increased [Unknown]
